FAERS Safety Report 7159050-7 (Version None)
Quarter: 2010Q4

REPORT INFORMATION
  Report Type: 
  Country: None (occurrence: None)
  Receive Date: 20101214
  Receipt Date: 20101201
  Transmission Date: 20110411
  Serious: Yes (Other)
  Sender: FDA-Public Use
  Company Number: US-ELI_LILLY_AND_COMPANY-US201011001972

PATIENT
  Sex: Male

DRUGS (4)
  1. CYMBALTA [Suspect]
     Indication: MAJOR DEPRESSION
     Dosage: 30 MG, EACH EVENING
     Dates: start: 20090716, end: 20090803
  2. CYMBALTA [Suspect]
     Dosage: 30 MG, EACH MORNING
     Dates: start: 20090804, end: 20090909
  3. RITALIN [Concomitant]
     Indication: DEPRESSION
     Dosage: 10 MG, 2/D
     Dates: start: 20090511
  4. KLONOPIN [Concomitant]
     Indication: ANXIETY
     Dosage: 1 MG, 2/D
     Dates: start: 20070607

REACTIONS (5)
  - FATIGUE [None]
  - HYPERHIDROSIS [None]
  - ROAD TRAFFIC ACCIDENT [None]
  - SEDATION [None]
  - SOMNOLENCE [None]
